FAERS Safety Report 6070196-7 (Version None)
Quarter: 2009Q1

REPORT INFORMATION
  Report Type: 
  Country: None (occurrence: None)
  Receive Date: 20090204
  Receipt Date: 20090128
  Transmission Date: 20090719
  Serious: Yes (Hospitalization)
  Sender: FDA-Public Use
  Company Number: 6048605

PATIENT
  Age: 82 Year
  Sex: Female

DRUGS (8)
  1. LODOZ (TABLET) (HYDROCHLOROTHIAZIDE, BISOPROLOL FUMARATE) [Suspect]
     Indication: DRUG USE FOR UNKNOWN INDICATION
     Dosage: 1 DOSAGE FORMS (1 DOSAGE FORMS, 1 IN 1 D) ORAL
     Route: 048
  2. IMOVANE(7.5 MG, TABLET) (ZOPICLONE) [Suspect]
     Indication: DRUG USE FOR UNKNOWN INDICATION
     Dosage: 1 DOSAGE FORMS (1 DOSAGE FORME, 1 IN 1 D) ORAL, 0.5 DOSAGE FORMS (0.5 DOSAGE FORMS, 1 IN 1 D) ORAL
     Route: 048
  3. FLECAINE (100 MG, PROLONGED-RELEASE CAPSULE) (FLECAINIDE ACETATE) [Suspect]
     Indication: DRUG USE FOR UNKNOWN INDICATION
     Dosage: 1 DOSAGE FORMS (1 DOSAGE FORMS, 1 IN 1 D) ORAL
     Route: 048
  4. DELURSAN (TABLET) (URSODEOXYCHOLIC ACID) [Concomitant]
  5. ACETAMINOPHEN [Concomitant]
  6. EUPHYTOSE (VALERIANA OFFICINALIS EXTRACE, CRATAEGUS  LAEVIGATA EXTRACT [Concomitant]
  7. DEBRIDAT (TABLET) (TRIMEBUTINE MALEATE) [Concomitant]
  8. DEDROGYL (ORAL DROPS, SUSPENSION) (CALCIFEDIOL) [Concomitant]

REACTIONS (5)
  - BALANCE DISORDER [None]
  - COGNITIVE DISORDER [None]
  - DISORIENTATION [None]
  - FALL [None]
  - OEDEMA PERIPHERAL [None]
